FAERS Safety Report 12839797 (Version 1)
Quarter: 2016Q4

REPORT INFORMATION
  Report Type: Spontaneous
  Country: US (occurrence: US)
  Receive Date: 20161011
  Receipt Date: 20161011
  Transmission Date: 20170207
  Serious: Yes (Hospitalization, Disabling, Other)
  Sender: FDA-Public Use
  Company Number: None

PATIENT
  Age: 34 Year
  Sex: Female
  Weight: 63 kg

DRUGS (25)
  1. MICONAZOLE NITRATE. [Concomitant]
     Active Substance: MICONAZOLE NITRATE
  2. POLYSPORIN [Concomitant]
     Active Substance: BACITRACIN ZINC\POLYMYXIN B SULFATE
  3. SEROQUEL [Suspect]
     Active Substance: QUETIAPINE FUMARATE
     Indication: INSOMNIA
     Route: 048
  4. ZOLPIDEM [Concomitant]
     Active Substance: ZOLPIDEM\ZOLPIDEM TARTRATE
  5. RETIN-A CREAM (TRETINOIN) [Concomitant]
  6. IBUPROFEN. [Concomitant]
     Active Substance: IBUPROFEN
  7. REFRESH OPTIVE [Concomitant]
     Active Substance: CARBOXYMETHYLCELLULOSE SODIUM\GLYCERIN
  8. CALCIUM + MAGNESIUM + ZINC + VITAMIN D3 [Concomitant]
  9. MOTRIN IB [Concomitant]
     Active Substance: IBUPROFEN
  10. TRIPLE ANTIBIOTIC OINTMENT [Concomitant]
     Active Substance: BACITRACIN ZINC\NEOMYCIN\NEOMYCIN SULFATE\POLYMYXIN B SULFATE
  11. WELLBUTRIN [Suspect]
     Active Substance: BUPROPION HYDROCHLORIDE
  12. SEROQUEL [Suspect]
     Active Substance: QUETIAPINE FUMARATE
     Indication: DEPRESSION
     Route: 048
  13. SERTRALINE [Suspect]
     Active Substance: SERTRALINE HYDROCHLORIDE
  14. LORAZEPAM. [Concomitant]
     Active Substance: LORAZEPAM
  15. NAPROXEN SODIUM. [Concomitant]
     Active Substance: NAPROXEN SODIUM
  16. DEPAKOTE [Suspect]
     Active Substance: DIVALPROEX SODIUM
     Indication: BIPOLAR II DISORDER
     Route: 048
     Dates: start: 20140301, end: 20141102
  17. DEPOPREVARA [Concomitant]
  18. CYCLOBENZAPRINE [Concomitant]
     Active Substance: CYCLOBENZAPRINE
  19. HALLS [Concomitant]
     Active Substance: MENTHOL
  20. SEROQUEL [Suspect]
     Active Substance: QUETIAPINE FUMARATE
     Indication: BIPOLAR DISORDER
     Route: 048
  21. ALBUTEROL. [Concomitant]
     Active Substance: ALBUTEROL
  22. MIDOL [Concomitant]
     Active Substance: IBUPROFEN
  23. CORALITE MENTHOL PAIN RELIEF [Concomitant]
     Active Substance: MENTHOL\METHYL SALICYLATE
  24. SEROQUEL [Suspect]
     Active Substance: QUETIAPINE FUMARATE
     Indication: ANXIETY
     Route: 048
  25. QVAR [Concomitant]
     Active Substance: BECLOMETHASONE DIPROPIONATE

REACTIONS (5)
  - Social problem [None]
  - Seizure [None]
  - Tremor [None]
  - Anxiety [None]
  - Agitation [None]

NARRATIVE: CASE EVENT DATE: 20141020
